FAERS Safety Report 18089208 (Version 4)
Quarter: 2020Q3

REPORT INFORMATION
  Report Type: Report from Study
  Country: US (occurrence: US)
  Receive Date: 20200729
  Receipt Date: 20200909
  Transmission Date: 20201103
  Serious: Yes (Other)
  Sender: FDA-Public Use
  Company Number: US-MALLINCKRODT-T202002491

PATIENT
  Sex: Female
  Weight: 91 kg

DRUGS (6)
  1. REPOSITORY CORTICOTROPIN INJECTION [Suspect]
     Active Substance: CORTICOTROPIN
     Indication: PULMONARY SARCOIDOSIS
     Dosage: 80 UNITS, TWICE WEEKLY
     Route: 058
     Dates: start: 20200508, end: 202005
  2. TRULICITY [Suspect]
     Active Substance: DULAGLUTIDE
     Indication: DIABETES MELLITUS
     Dosage: UNK
     Route: 065
  3. REPOSITORY CORTICOTROPIN INJECTION [Suspect]
     Active Substance: CORTICOTROPIN
     Dosage: UNK
     Route: 065
     Dates: start: 2020, end: 20200819
  4. IRON [Concomitant]
     Active Substance: IRON
     Indication: HAEMOGLOBIN DECREASED
     Dosage: UNK, COUPLE OF INFUSIONS
     Route: 041
  5. BYDUREON [Suspect]
     Active Substance: EXENATIDE
     Indication: DIABETES MELLITUS
     Dosage: UNK
     Route: 065
  6. REPOSITORY CORTICOTROPIN INJECTION [Suspect]
     Active Substance: CORTICOTROPIN
     Dosage: 80 UNITS, TWICE WEEKLY
     Route: 058
     Dates: start: 20200520, end: 2020

REACTIONS (15)
  - Urinary tract infection [Unknown]
  - Anxiety [Unknown]
  - Urticaria [Unknown]
  - Contusion [Unknown]
  - Capsule endoscopy [Unknown]
  - Injection site haemorrhage [Unknown]
  - Blood calcium increased [Unknown]
  - Fatigue [Unknown]
  - Hot flush [Unknown]
  - Feeling hot [Unknown]
  - Mass [Unknown]
  - Crying [Unknown]
  - Diabetes mellitus [Recovering/Resolving]
  - Headache [Unknown]
  - Product dose omission issue [Unknown]

NARRATIVE: CASE EVENT DATE: 2020
